FAERS Safety Report 10023059 (Version 2)
Quarter: 2014Q2

REPORT INFORMATION
  Report Type: Spontaneous
  Country: US (occurrence: US)
  Receive Date: 20140319
  Receipt Date: 20140416
  Transmission Date: 20141212
  Serious: No
  Sender: FDA-Public Use
  Company Number: US-009507513-1403USA008089

PATIENT
  Age: 47 Year
  Sex: Female

DRUGS (1)
  1. JANUMET [Suspect]
     Indication: TYPE 2 DIABETES MELLITUS
     Dosage: 1 TABLET, QD
     Route: 048
     Dates: start: 20120202, end: 20121001

REACTIONS (1)
  - Drug ineffective [Unknown]
